FAERS Safety Report 12548417 (Version 1)
Quarter: 2016Q3

REPORT INFORMATION
  Report Type: Spontaneous
  Country: US (occurrence: None)
  Receive Date: 20160711
  Receipt Date: 20160711
  Transmission Date: 20161109
  Serious: Yes (Life-Threatening, Hospitalization)
  Sender: FDA-Public Use
  Company Number: None

PATIENT
  Age: 88 Year
  Sex: Male
  Weight: 60.4 kg

DRUGS (1)
  1. IDARUCIZUMAB [Suspect]
     Active Substance: IDARUCIZUMAB
     Indication: PROCOAGULANT THERAPY
     Route: 042
     Dates: start: 20160602, end: 20160602

REACTIONS (4)
  - Muscular weakness [None]
  - Gastrointestinal haemorrhage [None]
  - Aphasia [None]
  - Transient ischaemic attack [None]

NARRATIVE: CASE EVENT DATE: 20160602
